FAERS Safety Report 4811714-3 (Version None)
Quarter: 2005Q4

REPORT INFORMATION
  Report Type: 
  Country: None (occurrence: None)
  Receive Date: 20051025
  Receipt Date: 20051012
  Transmission Date: 20060501
  Serious: Yes (Other)
  Sender: FDA-Public Use
  Company Number: 2005121859

PATIENT
  Age: 66 Year
  Sex: Female

DRUGS (2)
  1. LYRICA [Suspect]
     Indication: BACK PAIN
     Dosage: 150 MG (75 MG, 2 IN 1 D)
     Dates: start: 20050813, end: 20050815
  2. IBUPROFEN [Concomitant]

REACTIONS (5)
  - ANXIETY [None]
  - DELUSION [None]
  - HALLUCINATION [None]
  - NEUROSIS [None]
  - PSYCHOTIC DISORDER [None]
